FAERS Safety Report 20335218 (Version 1)
Quarter: 2022Q1

REPORT INFORMATION
  Report Type: Report from Study
  Country: CA (occurrence: CA)
  Receive Date: 20220114
  Receipt Date: 20220114
  Transmission Date: 20220423
  Serious: Yes (Hospitalization)
  Sender: FDA-Public Use
  Company Number: CA-HLS-202108946

PATIENT
  Sex: Female

DRUGS (8)
  1. CLOZARIL [Suspect]
     Active Substance: CLOZAPINE
     Indication: Product used for unknown indication
     Route: 048
     Dates: start: 19921029
  2. CITALOPRAM [Concomitant]
     Active Substance: CITALOPRAM HYDROBROMIDE
     Indication: Product used for unknown indication
     Route: 065
  3. CHOLECALCIFEROL [Concomitant]
     Active Substance: CHOLECALCIFEROL
     Indication: Product used for unknown indication
     Dosage: 1000 UNIT
     Route: 065
  4. SENNA [Concomitant]
     Active Substance: SENNA LEAF\SENNOSIDES\SENNOSIDES A AND B
     Indication: Product used for unknown indication
     Route: 065
  5. SELENIUM SULFIDE [Concomitant]
     Active Substance: SELENIUM SULFIDE
     Indication: Product used for unknown indication
     Route: 065
  6. MOMETASONE [Concomitant]
     Active Substance: MOMETASONE
     Indication: Product used for unknown indication
     Route: 065
  7. Glaxal base cream [Concomitant]
     Indication: Product used for unknown indication
     Route: 065
  8. CALCIUM CARBONATE [Concomitant]
     Active Substance: CALCIUM CARBONATE
     Indication: Product used for unknown indication
     Dosage: 2 TIMES A DAY
     Route: 048

REACTIONS (8)
  - Abdominal pain [Recovered/Resolved]
  - Ankle fracture [Recovered/Resolved]
  - Mobility decreased [Recovering/Resolving]
  - Faecaloma [Unknown]
  - Joint swelling [Recovered/Resolved]
  - Colitis [Unknown]
  - Endometrial hyperplasia [Unknown]
  - Skin ulcer [Recovered/Resolved]
